FAERS Safety Report 8756646 (Version 1)
Quarter: 2012Q4

REPORT INFORMATION
  Report Type: 
  Country: ZA (occurrence: ZA)
  Receive Date: 20120828
  Receipt Date: 20120828
  Transmission Date: 20130627
  Serious: Yes (Death, Other)
  Sender: FDA-Public Use
  Company Number: ZA-JNJFOC-20120811570

PATIENT
  Sex: Female

DRUGS (1)
  1. INFLIXIMAB, RECOMBINANT [Suspect]
     Indication: CROHN^S DISEASE
     Route: 042
     Dates: end: 20120711

REACTIONS (2)
  - Death [Fatal]
  - Surgery [Not Recovered/Not Resolved]
